FAERS Safety Report 10517041 (Version 2)
Quarter: 2014Q4

REPORT INFORMATION
  Report Type: Report from Study
  Country: FR (occurrence: GB)
  Receive Date: 20141014
  Receipt Date: 20141014
  Transmission Date: 20150528
  Serious: Yes (Hospitalization)
  Sender: FDA-Public Use
  Company Number: FR-MYLANLABS-2012S1023804

PATIENT

DRUGS (8)
  1. CYSTAGON [Suspect]
     Active Substance: CYSTEAMINE BITARTRATE
     Dosage: 50 MG/KG,QD
     Route: 048
  2. CYSTAGON [Suspect]
     Active Substance: CYSTEAMINE BITARTRATE
     Indication: CYSTINOSIS
     Dosage: UNK
     Route: 048
     Dates: start: 19981207
  3. THYROXIN [Concomitant]
     Active Substance: LEVOTHYROXINE
     Indication: GASTROSTOMY
     Dosage: 100 MG,QD
  4. CYSTAGON [Suspect]
     Active Substance: CYSTEAMINE BITARTRATE
     Dosage: 40 MG/KG, QD
     Route: 048
  5. POLYCITRA-K /01439501/ [Concomitant]
     Indication: GASTROSTOMY
     Dosage: 80 ML,QD
  6. CYSTAGON [Suspect]
     Active Substance: CYSTEAMINE BITARTRATE
     Dosage: 4 MG/KG,QD
     Route: 048
  7. 1-ALPHA-HYDROXYCHOLECALCIFEROL [Concomitant]
     Indication: GASTROSTOMY
     Dosage: 200 NG,QD
  8. INDOMETHACIN. [Concomitant]
     Active Substance: INDOMETHACIN
     Indication: GASTROSTOMY
     Dosage: 10 ML,QD

REACTIONS (3)
  - Vomiting [Not Recovered/Not Resolved]
  - Hair colour changes [Not Recovered/Not Resolved]
  - Incorrect dose administered [Not Recovered/Not Resolved]

NARRATIVE: CASE EVENT DATE: 199812
